FAERS Safety Report 9247921 (Version 1)
Quarter: 2013Q1

REPORT INFORMATION
  Report Type: Spontaneous
  Country: US (occurrence: None)
  Receive Date: 20130305
  Receipt Date: 20130305
  Transmission Date: 20140127
  Serious: Yes (Other)
  Sender: FDA-Public Use
  Company Number: 163-21880-12053019

PATIENT
  Age: 64 Year
  Sex: Female
  Weight: 58.51 kg

DRUGS (7)
  1. REVLIMID [Suspect]
     Indication: PLASMA CELL MYELOMA
     Route: 048
     Dates: start: 20120327
  2. ACYCLOVIR (ACICLOVIR) [Concomitant]
  3. ASPIRIN LOW DOSE (ACETYLSALICYLIC ACID) [Concomitant]
  4. BACTRIM (BACTRIM) [Concomitant]
  5. CELEXA (CITALOPRAM HYDROBROMIDE) [Concomitant]
  6. ENOXAPARIN (ENOXAPARIN) [Concomitant]
  7. SYNTHROID (LEVOTHYROXINE SODIUM) [Concomitant]

REACTIONS (1)
  - Thrombosis [None]
